FAERS Safety Report 16562581 (Version 4)
Quarter: 2019Q4

REPORT INFORMATION
  Report Type: Spontaneous
  Country: JP (occurrence: JP)
  Receive Date: 20190711
  Receipt Date: 20191010
  Transmission Date: 20200122
  Serious: Yes (Hospitalization, Other)
  Sender: FDA-Public Use
  Company Number: JP-PFIZER INC-2019227958

PATIENT
  Age: 60 Year
  Sex: Female

DRUGS (4)
  1. PROGRAF [Suspect]
     Active Substance: TACROLIMUS
     Indication: RHEUMATOID ARTHRITIS
     Dosage: 3 MG, 3X/DAY
     Route: 048
     Dates: start: 200609, end: 200705
  2. ENBREL [Suspect]
     Active Substance: ETANERCEPT
     Dosage: UNK
  3. ENBREL [Suspect]
     Active Substance: ETANERCEPT
     Indication: RHEUMATOID ARTHRITIS
     Dosage: 25 MG, WEEKLY
     Route: 058
     Dates: start: 200706
  4. RHEUMATREX [Suspect]
     Active Substance: METHOTREXATE SODIUM
     Indication: RHEUMATOID ARTHRITIS
     Dosage: 6 MG, WEEKLY
     Route: 048
     Dates: start: 200410

REACTIONS (3)
  - Off label use [Unknown]
  - Squamous cell carcinoma of the tongue [Unknown]
  - Leukoplakia [Unknown]

NARRATIVE: CASE EVENT DATE: 2019
